FAERS Safety Report 14880674 (Version 1)
Quarter: 2018Q2

REPORT INFORMATION
  Report Type: Spontaneous
  Country: US (occurrence: US)
  Receive Date: 20180425
  Receipt Date: 20180425
  Transmission Date: 20180711
  Serious: No
  Sender: FDA-Public Use
  Company Number: None

PATIENT
  Age: 56 Year
  Sex: Female

DRUGS (1)
  1. PROMACTA [Suspect]
     Active Substance: ELTROMBOPAG OLAMINE
     Route: 048

REACTIONS (3)
  - Rash [None]
  - Urticaria [None]
  - Pruritus generalised [None]

NARRATIVE: CASE EVENT DATE: 20180425
